FAERS Safety Report 5134690-5 (Version None)
Quarter: 2006Q4

REPORT INFORMATION
  Report Type: 
  Country: None (occurrence: None)
  Receive Date: 20061025
  Receipt Date: 20011205
  Transmission Date: 20070319
  Serious: Yes (Death)
  Sender: FDA-Public Use
  Company Number: US-PURDUE-2015119

PATIENT
  Age: 54 Year
  Sex: Female
  Weight: 72 kg

DRUGS (12)
  1. OXYCONTIN [Suspect]
     Indication: PAIN MANAGEMENT
     Dosage: UNK MG, UNK
     Route: 048
  2. ETHANOL [Suspect]
     Indication: ALCOHOL USE
     Dosage: UNK, SEE TEXT
  3. NORTRIPTYLINE HCL [Suspect]
     Indication: DRUG USE FOR UNKNOWN INDICATION
     Dosage: UNK, SEE TEXT
  4. HYDROCODONE [Suspect]
     Indication: DRUG USE FOR UNKNOWN INDICATION
     Dosage: UNK, SEE TEXT
  5. HYDROMORPHONE HCL [Suspect]
     Indication: DRUG USE FOR UNKNOWN INDICATION
     Dosage: UNK, SEE TEXT
  6. OXYMORPHONE [Suspect]
     Indication: DRUG USE FOR UNKNOWN INDICATION
     Dosage: UNK, SEE TEXT
  7. TOPAMAX [Concomitant]
     Indication: DRUG USE FOR UNKNOWN INDICATION
  8. KADIAN ^KNOLL^ [Concomitant]
     Indication: DRUG USE FOR UNKNOWN INDICATION
  9. LOPERAMIDE [Concomitant]
     Indication: DRUG USE FOR UNKNOWN INDICATION
  10. ELAVIL [Suspect]
     Indication: DRUG USE FOR UNKNOWN INDICATION
  11. XANAX [Suspect]
     Indication: DRUG USE FOR UNKNOWN INDICATION
  12. ZOLOFT [Suspect]
     Indication: DRUG USE FOR UNKNOWN INDICATION

REACTIONS (4)
  - DRUG ABUSER [None]
  - MULTIPLE DRUG OVERDOSE ACCIDENTAL [None]
  - PAIN [None]
  - VICTIM OF CRIME [None]
